FAERS Safety Report 7340744-5 (Version None)
Quarter: 2011Q1

REPORT INFORMATION
  Report Type: 
  Country: None (occurrence: None)
  Receive Date: 20110301
  Receipt Date: 20110214
  Transmission Date: 20110831
  Serious: Yes (Other)
  Sender: FDA-Public Use
  Company Number: IPC201102-000128

PATIENT
  Sex: Male

DRUGS (2)
  1. METOCLOPRAMIDE HYDROCHLORIDE [Suspect]
     Dosage: ORAL
     Route: 048
     Dates: start: 20070701, end: 20100301
  2. METOCLOPRAMIDE [Suspect]
     Dosage: ORAL
     Route: 048
     Dates: start: 20070701, end: 20100301

REACTIONS (8)
  - TARDIVE DYSKINESIA [None]
  - TREMOR [None]
  - RESTLESS LEGS SYNDROME [None]
  - DYSTONIA [None]
  - AKATHISIA [None]
  - EXCESSIVE EYE BLINKING [None]
  - EXTRAPYRAMIDAL DISORDER [None]
  - DYSKINESIA [None]
